FAERS Safety Report 24578665 (Version 2)
Quarter: 2024Q4

REPORT INFORMATION
  Report Type: Spontaneous
  Country: US (occurrence: US)
  Receive Date: 20241105
  Receipt Date: 20241111
  Transmission Date: 20250115
  Serious: Yes (Hospitalization, Other)
  Sender: SANDOZ
  Company Number: US-SANDOZ-SDZ2024US091437

PATIENT
  Age: 23 Year
  Sex: Female
  Weight: 64.85 kg

DRUGS (6)
  1. AZITHROMYCIN [Suspect]
     Active Substance: AZITHROMYCIN
     Indication: Mycobacterium avium complex infection
     Dosage: 250 MG, QD
     Route: 065
     Dates: start: 20220224
  2. AZITHROMYCIN [Suspect]
     Active Substance: AZITHROMYCIN
     Dosage: 250 MG, QD
     Route: 065
     Dates: start: 20241021
  3. LAMPRENE [Suspect]
     Active Substance: CLOFAZIMINE
     Indication: Lung disorder
     Dosage: 100 MG, QD
     Route: 048
     Dates: start: 20241021
  4. LAMPRENE [Suspect]
     Active Substance: CLOFAZIMINE
     Indication: Mycobacterium avium complex infection
     Dosage: 100 MG QD
     Route: 048
     Dates: start: 202311
  5. ETHAMBUTOL [Concomitant]
     Active Substance: ETHAMBUTOL HYDROCHLORIDE
     Indication: Product used for unknown indication
     Dosage: 1600 MG, QD
     Route: 065
     Dates: start: 202202
  6. LINEZOLID [Concomitant]
     Active Substance: LINEZOLID
     Indication: Product used for unknown indication
     Dosage: 300 MG, QD
     Route: 065
     Dates: start: 20231204

REACTIONS (7)
  - Electrocardiogram QT prolonged [Recovered/Resolved]
  - Dizziness [Recovered/Resolved]
  - Pneumonia [Recovering/Resolving]
  - Dyspnoea [Recovered/Resolved]
  - Chest pain [Recovered/Resolved]
  - Skin discolouration [Not Recovered/Not Resolved]
  - Xerosis [Not Recovered/Not Resolved]

NARRATIVE: CASE EVENT DATE: 20240513
